FAERS Safety Report 18576410 (Version 1)
Quarter: 2020Q4

REPORT INFORMATION
  Report Type: Spontaneous
  Country: US (occurrence: US)
  Receive Date: 20201203
  Receipt Date: 20201203
  Transmission Date: 20210114
  Serious: No
  Sender: FDA-Public Use
  Company Number: US-B.I. PHARMACEUTICALS,INC./RIDGEFIELD-2020-BI-066066

PATIENT
  Sex: Male

DRUGS (1)
  1. JARDIANCE [Suspect]
     Active Substance: EMPAGLIFLOZIN
     Indication: PRODUCT USED FOR UNKNOWN INDICATION
     Dates: start: 202011

REACTIONS (4)
  - Swelling [Unknown]
  - Infection [Unknown]
  - Penile discomfort [Unknown]
  - Pruritus [Unknown]

NARRATIVE: CASE EVENT DATE: 2020
